FAERS Safety Report 9479276 (Version 1)
Quarter: 2013Q3

REPORT INFORMATION
  Report Type: Spontaneous
  Country: US (occurrence: US)
  Receive Date: 20130827
  Receipt Date: 20130827
  Transmission Date: 20140515
  Serious: Yes (Hospitalization, Other)
  Sender: FDA-Public Use
  Company Number: US-B.I. PHARMACEUTICALS,INC./RIDGEFIELD-2013-BI-26176GD

PATIENT
  Age: 28 Year
  Sex: Male

DRUGS (3)
  1. CLONIDINE [Suspect]
     Dosage: MULTIPLE PILLS
     Route: 048
  2. CLONAZEPAM [Suspect]
     Dosage: 16 PILLS
     Route: 048
  3. METHADONE [Concomitant]
     Indication: SUBSTANCE ABUSE

REACTIONS (7)
  - Suicide attempt [Recovered/Resolved]
  - Drug abuse [Unknown]
  - Overdose [Recovered/Resolved]
  - Respiratory acidosis [Unknown]
  - Hypercapnia [Unknown]
  - Sinus bradycardia [Unknown]
  - Withdrawal hypertension [Recovered/Resolved]
